FAERS Safety Report 22622969 (Version 5)
Quarter: 2025Q1

REPORT INFORMATION
  Report Type: Report from Study
  Country: US (occurrence: US)
  Receive Date: 20230621
  Receipt Date: 20250108
  Transmission Date: 20250408
  Serious: No
  Sender: SANOFI AVENTIS
  Company Number: US-SA-SAC20230619001540

PATIENT
  Age: 77 Year
  Sex: Female

DRUGS (1)
  1. DUPIXENT [Suspect]
     Active Substance: DUPILUMAB
     Indication: Dermatitis atopic
     Dosage: 300 MG, FREQUENCY: OTHER
     Route: 058

REACTIONS (6)
  - Injection site haemorrhage [Unknown]
  - Device operational issue [Unknown]
  - Injection site pain [Unknown]
  - Injection site bruising [Unknown]
  - Accidental exposure to product [Unknown]
  - Exposure via skin contact [Unknown]
